FAERS Safety Report 14823865 (Version 1)
Quarter: 2018Q2

REPORT INFORMATION
  Report Type: Spontaneous
  Country: DE (occurrence: DE)
  Receive Date: 20180428
  Receipt Date: 20180428
  Transmission Date: 20180711
  Serious: Yes (Hospitalization)
  Sender: FDA-Public Use
  Company Number: DE-CONCORDIA PHARMACEUTICALS INC.-E2B_00011443

PATIENT
  Age: 71 Year
  Sex: Male

DRUGS (15)
  1. PREDNISOLONE. [Suspect]
     Active Substance: PREDNISOLONE
     Dosage: 50 MG, NACH SCHEMA
  2. ROFLUMILAST. [Concomitant]
     Active Substance: ROFLUMILAST
     Dosage: 500 ?G, 1-0-0-0
  3. NITRENDIPIN [Concomitant]
     Active Substance: NITRENDIPINE
     Dosage: 20 MG, 1-0-0-0
  4. EPLERENON [Concomitant]
     Active Substance: EPLERENONE
     Dosage: 25 MG, 2-0-0-0
  5. METOPROLOL. [Suspect]
     Active Substance: METOPROLOL
     Dosage: 47.5 MG, 1-0-1-0
  6. APSOMOL [Concomitant]
     Active Substance: ALBUTEROL
     Dosage: BEDARF, DOSIERAEROSOL
  7. SALBUTAMOL [Concomitant]
     Active Substance: ALBUTEROL
     Dosage: 3-3-3-0, TROPFEN
     Route: 055
  8. FUROSEMID [Concomitant]
     Active Substance: FUROSEMIDE
     Dosage: 40 MG, 1-1-0-0
  9. ATROVENT [Concomitant]
     Active Substance: IPRATROPIUM BROMIDE
     Dosage: 20-20-20-0, TROPFEN
     Route: 055
  10. ACETYLSALICYLSAEURE [Concomitant]
     Active Substance: ASPIRIN
     Dosage: 100 MG, 0-1-0-0
  11. PRASUGREL. [Concomitant]
     Active Substance: PRASUGREL
     Dosage: 10 MG, 1-0-0-0
  12. RAMIPRIL. [Concomitant]
     Active Substance: RAMIPRIL
     Dosage: 5 MG, 1-0-0-0
  13. URAPIDIL [Concomitant]
     Active Substance: URAPIDIL
     Dosage: 60 MG, 1-0-0-1
  14. TAMSULOSIN [Concomitant]
     Active Substance: TAMSULOSIN
     Dosage: 0.4 MG, 1-0-0-0
  15. ATORVASTATIN [Concomitant]
     Active Substance: ATORVASTATIN
     Dosage: 40 MG, 0-0-1-0

REACTIONS (2)
  - Erythema [Unknown]
  - Swelling [Unknown]
